FAERS Safety Report 24792356 (Version 1)
Quarter: 2024Q4

REPORT INFORMATION
  Report Type: Spontaneous
  Country: US (occurrence: US)
  Receive Date: 20241231
  Receipt Date: 20241231
  Transmission Date: 20250115
  Serious: Yes (Other)
  Sender: BECTON DICKINSON
  Company Number: US-BECTON DICKINSON-US-BD-24-000669

PATIENT
  Age: 29 Year
  Sex: Female

DRUGS (2)
  1. CHLORAPREP [Suspect]
     Active Substance: CHLORHEXIDINE GLUCONATE\ISOPROPYL ALCOHOL
     Indication: Infection prophylaxis
     Dosage: 26 MILLILITER, SINGLE
     Route: 061
     Dates: start: 20241015, end: 20241015
  2. DERMABOND [Suspect]
     Active Substance: OCRYLATE
     Indication: Product used for unknown indication
     Dosage: UNK
     Route: 065

REACTIONS (4)
  - Palpitations [Unknown]
  - Sleep disorder [Unknown]
  - Incision site erythema [Recovered/Resolved with Sequelae]
  - Incision site pruritus [Recovered/Resolved with Sequelae]

NARRATIVE: CASE EVENT DATE: 20241029
